FAERS Safety Report 4593036-1 (Version None)
Quarter: 2005Q1

REPORT INFORMATION
  Report Type: 
  Country: None (occurrence: None)
  Receive Date: 20050301
  Receipt Date: 20050218
  Transmission Date: 20050727
  Serious: Yes (Hospitalization)
  Sender: FDA-Public Use
  Company Number: GB-JNJFOC-20050204761

PATIENT
  Sex: Female
  Weight: 54 kg

DRUGS (6)
  1. REMICADE [Suspect]
     Indication: RHEUMATOID ARTHRITIS
     Route: 042
  2. METHOTREXATE [Concomitant]
  3. FOLIC ACID [Concomitant]
  4. CELEBREX [Concomitant]
  5. COD LIVER OIL [Concomitant]
  6. GLUCOSAMINE [Concomitant]

REACTIONS (3)
  - FALL [None]
  - HAEMORRHAGE [None]
  - HEAD INJURY [None]
